FAERS Safety Report 25961998 (Version 2)
Quarter: 2025Q4

REPORT INFORMATION
  Report Type: Spontaneous
  Country: EU (occurrence: EU)
  Receive Date: 20251027
  Receipt Date: 20251215
  Transmission Date: 20260117
  Serious: Yes (Death, Other)
  Sender: ROCHE
  Company Number: EU-ROCHE-10000413136

PATIENT
  Sex: Male

DRUGS (2)
  1. OBINUTUZUMAB [Suspect]
     Active Substance: OBINUTUZUMAB
     Indication: Diffuse large B-cell lymphoma
  2. MORPHINE [Suspect]
     Active Substance: MORPHINE
     Indication: Pain

REACTIONS (5)
  - Dysphagia [Unknown]
  - Pneumonia aspiration [Unknown]
  - Septic shock [Unknown]
  - Death [Fatal]
  - Pain [Unknown]
